FAERS Safety Report 6697118-X (Version None)
Quarter: 2010Q2

REPORT INFORMATION
  Report Type: 
  Country: None (occurrence: None)
  Receive Date: 20100426
  Receipt Date: 20100210
  Transmission Date: 20101027
  Serious: Yes (Other)
  Sender: FDA-Public Use
  Company Number: BR-ASTRAZENECA-2010SE06323

PATIENT
  Age: 29 Year
  Sex: Female

DRUGS (3)
  1. SYMBICORT [Suspect]
     Indication: ASTHMA
     Dosage: 160/4.5 MCG
     Route: 055
     Dates: start: 20050101, end: 20100201
  2. SYMBICORT [Suspect]
     Dosage: 320/9  MCG
     Route: 055
     Dates: start: 20050101, end: 20100201
  3. BUDECORT AQUA [Suspect]
     Indication: RHINITIS
     Route: 045
     Dates: start: 20090501

REACTIONS (2)
  - ABORTION SPONTANEOUS [None]
  - DRUG EXPOSURE DURING PREGNANCY [None]
